FAERS Safety Report 4386607-9 (Version None)
Quarter: 2004Q2

REPORT INFORMATION
  Report Type: 
  Country: None (occurrence: None)
  Receive Date: 20040629
  Receipt Date: 20040514
  Transmission Date: 20050107
  Serious: Yes (Hospitalization)
  Sender: FDA-Public Use
  Company Number: JP-GLAXOSMITHKLINE-B0332797A

PATIENT
  Age: 85 Year
  Sex: Male

DRUGS (10)
  1. PAXIL [Suspect]
     Indication: DEPRESSION
     Route: 048
     Dates: start: 20031226, end: 20040224
  2. FAMOTIDINE [Suspect]
     Dosage: 20MG PER DAY
     Route: 048
     Dates: start: 20030716
  3. BUFFERIN [Concomitant]
     Dosage: 81MG PER DAY
     Route: 048
     Dates: start: 20030716
  4. HARNAL [Concomitant]
     Dosage: .2MG PER DAY
     Route: 048
     Dates: start: 20030716
  5. PROSTAL [Concomitant]
     Dosage: 50MG PER DAY
     Route: 048
     Dates: start: 20030716
  6. MUCOSOLVAN [Concomitant]
     Dosage: 3TAB PER DAY
     Route: 048
     Dates: start: 20030716
  7. NEUQUINON [Concomitant]
     Dosage: 3TAB PER DAY
     Route: 048
     Dates: start: 20030716
  8. FLUITRAN [Concomitant]
     Dosage: 6MG PER DAY
     Route: 048
     Dates: start: 20030716
  9. ALESION [Concomitant]
     Dosage: 20MG SINGLE DOSE
     Route: 048
     Dates: start: 20030716
  10. SELBEX [Concomitant]
     Dosage: 3CAP PER DAY
     Route: 048
     Dates: start: 20030716

REACTIONS (11)
  - BLISTER [None]
  - ECZEMA [None]
  - EOSINOPHIL COUNT INCREASED [None]
  - EPIDERMOLYSIS [None]
  - HYPERSENSITIVITY [None]
  - HYPOALBUMINAEMIA [None]
  - HYPONATRAEMIA [None]
  - HYPOPROTEINAEMIA [None]
  - PRURITUS [None]
  - PYREXIA [None]
  - SMALLPOX [None]
